FAERS Safety Report 10159902 (Version 2)
Quarter: 2014Q2

REPORT INFORMATION
  Report Type: Spontaneous
  Country: US (occurrence: US)
  Receive Date: 20140508
  Receipt Date: 20140515
  Transmission Date: 20141212
  Serious: Yes (Other)
  Sender: FDA-Public Use
  Company Number: US-FRI-1000067062

PATIENT
  Age: 45 Year
  Sex: Male

DRUGS (9)
  1. FETZIMA [Suspect]
     Indication: DEPRESSION
     Dosage: 40 MG
     Dates: start: 20140312, end: 20140404
  2. XANAX [Concomitant]
     Indication: ANXIETY
     Dosage: 0.5 MG
  3. AMBIEN [Concomitant]
     Indication: INSOMNIA
     Dosage: 10 MG QHS
  4. PRILOSEC [Concomitant]
     Indication: GASTROOESOPHAGEAL REFLUX DISEASE
     Dosage: 40 MG
  5. LIPITOR [Concomitant]
     Indication: HYPERLIPIDAEMIA
     Dosage: 10 MG
  6. TOPROL XL [Concomitant]
     Indication: ATRIAL FIBRILLATION
     Dosage: 50 MG
  7. LEXAPRO [Concomitant]
     Indication: DEPRESSION
     Dosage: 10 MG
  8. ASPIRIN [Concomitant]
     Indication: ATRIAL FIBRILLATION
     Dosage: 325 MG
  9. MOBIC [Concomitant]
     Indication: INTERVERTEBRAL DISC DEGENERATION
     Dosage: 15 MG

REACTIONS (1)
  - Atrial fibrillation [Recovered/Resolved]
